FAERS Safety Report 12805026 (Version 3)
Quarter: 2017Q2

REPORT INFORMATION
  Report Type: Report from Study
  Country: GB (occurrence: GB)
  Receive Date: 20161004
  Receipt Date: 20170626
  Transmission Date: 20170830
  Serious: Yes (Other)
  Sender: FDA-Public Use
  Company Number: GB-ROCHE-1555563

PATIENT

DRUGS (1)
  1. TENECTEPLASE [Suspect]
     Active Substance: TENECTEPLASE
     Indication: ISCHAEMIC STROKE
     Dosage: 0.25 MG PER KG, TO A MAXIMUM 25 MG AS A SINGLE BOLUS
     Route: 040

REACTIONS (2)
  - Product use in unapproved indication [Unknown]
  - Chest pain [Unknown]
